FAERS Safety Report 7515927-1 (Version None)
Quarter: 2011Q2

REPORT INFORMATION
  Report Type: 
  Country: None (occurrence: None)
  Receive Date: 20110601
  Receipt Date: 20110517
  Transmission Date: 20111010
  Serious: Yes (Other)
  Sender: FDA-Public Use
  Company Number: GB-JNJFOC-20101100179

PATIENT
  Age: 60 Year
  Sex: Female
  Weight: 66 kg

DRUGS (4)
  1. RITUXIMAB [Suspect]
     Indication: RHEUMATOID ARTHRITIS
  2. REMICADE [Suspect]
     Indication: RHEUMATOID ARTHRITIS
     Dosage: ON 20-FEB-2008, PATIENT WAS STILL ON DRUG
     Route: 042
     Dates: start: 20030306
  3. METHOTREXATE [Concomitant]
     Dates: start: 20030306
  4. REMICADE [Suspect]
     Dosage: ON 20-FEB-2008, PATIENT WAS STILL ON DRUG
     Route: 042
     Dates: start: 20080101

REACTIONS (2)
  - LUNG ADENOCARCINOMA [None]
  - LOWER RESPIRATORY TRACT INFECTION [None]
